FAERS Safety Report 9413837 (Version 2)
Quarter: 2013Q3

REPORT INFORMATION
  Report Type: Spontaneous
  Country: US (occurrence: US)
  Receive Date: 20130723
  Receipt Date: 20130805
  Transmission Date: 20140515
  Serious: Yes (Congenital Anomaly, Other)
  Sender: FDA-Public Use
  Company Number: US-PFIZER INC-2013211953

PATIENT
  Sex: Male

DRUGS (17)
  1. ZOLOFT [Suspect]
     Indication: DEPRESSION
     Dosage: UNK
     Route: 064
     Dates: start: 1998, end: 2004
  2. ZYRTEC [Concomitant]
     Dosage: UNK
     Route: 064
  3. PRENATAL VITAMINS [Concomitant]
     Dosage: UNK
     Route: 064
  4. LASIX [Concomitant]
     Dosage: UNK
     Route: 064
  5. COMBIVENT [Concomitant]
     Dosage: UNK
     Route: 064
  6. POTASSIUM [Concomitant]
     Dosage: UNK
     Route: 064
  7. HYDRALAZINE [Concomitant]
     Dosage: UNK
     Route: 064
  8. COREG [Concomitant]
     Dosage: UNK
     Route: 064
  9. DURADRIN [Concomitant]
     Dosage: UNK
     Route: 064
  10. VIOXX [Concomitant]
     Dosage: UNK
     Route: 064
  11. PROZAC [Concomitant]
     Dosage: UNK
     Route: 064
  12. VASOTEC [Concomitant]
     Dosage: UNK
     Route: 064
  13. PRILOSEC [Concomitant]
     Dosage: UNK
     Route: 064
  14. CLONAZEPAM [Concomitant]
     Dosage: UNK
     Route: 064
  15. NORVASC [Concomitant]
     Dosage: UNK
     Route: 064
  16. ALBUTEROL [Concomitant]
     Dosage: UNK
     Route: 064
  17. ULTRAM [Concomitant]
     Dosage: UNK
     Route: 064

REACTIONS (3)
  - Foetal exposure during pregnancy [Unknown]
  - Hypospadias [Unknown]
  - Premature baby [Unknown]
